FAERS Safety Report 24923903 (Version 3)
Quarter: 2025Q1

REPORT INFORMATION
  Report Type: Spontaneous
  Country: US (occurrence: US)
  Receive Date: 20250204
  Receipt Date: 20250228
  Transmission Date: 20250409
  Serious: No
  Sender: MERCK SHARP & DOHME LLC
  Company Number: US-PFIZER INC-202500023422

PATIENT
  Age: 47 Year
  Sex: Female

DRUGS (2)
  1. TUCATINIB [Suspect]
     Active Substance: TUCATINIB
     Indication: HER2 negative breast cancer
     Dosage: DOSE DESCRIPTION : TWO 150 MG TABLETS, TWICE DAILY?DAILY DOSE : 600 MILLIGRAM?CONCENTRATION: 150 ...
     Dates: start: 20240208
  2. XELODA [Suspect]
     Active Substance: CAPECITABINE

REACTIONS (6)
  - Impaired healing [Unknown]
  - Diarrhoea [Recovering/Resolving]
  - Pain in extremity [Recovering/Resolving]
  - Back pain [Recovered/Resolved]
  - Illness [Unknown]
  - Off label use [Unknown]

NARRATIVE: CASE EVENT DATE: 20240208
